FAERS Safety Report 4875131-2 (Version None)
Quarter: 2006Q1

REPORT INFORMATION
  Report Type: 
  Country: None (occurrence: None)
  Receive Date: 20060109
  Receipt Date: 20051229
  Transmission Date: 20060701
  Serious: Yes (Other)
  Sender: FDA-Public Use
  Company Number: US-JNJFOC-20051201873

PATIENT
  Sex: Female
  Weight: 54.43 kg

DRUGS (44)
  1. REMICADE [Suspect]
     Route: 042
  2. REMICADE [Suspect]
     Route: 042
  3. REMICADE [Suspect]
     Route: 042
  4. REMICADE [Suspect]
     Indication: RHEUMATOID ARTHRITIS
     Route: 042
  5. ECOTRIN [Concomitant]
  6. DIOVAN [Concomitant]
  7. DIOVAN [Concomitant]
  8. NORVASC [Concomitant]
  9. LUMIGAN [Concomitant]
     Dosage: ONE DROP IN EACH EYE DAILY
     Route: 047
  10. PHYSICIANS JOINT [Concomitant]
  11. CALCIUM WITH VITAMIN D [Concomitant]
  12. CALCIUM WITH VITAMIN D [Concomitant]
  13. CALCIUM WITH VITAMIN D [Concomitant]
  14. METAMUCIL [Concomitant]
     Dosage: MAY INCREASE TO TWICE DAILY
  15. MULTIVITAMIN [Concomitant]
  16. MULTIVITAMIN [Concomitant]
  17. MULTIVITAMIN [Concomitant]
  18. MULTIVITAMIN [Concomitant]
  19. MULTIVITAMIN [Concomitant]
  20. MULTIVITAMIN [Concomitant]
  21. MULTIVITAMIN [Concomitant]
  22. MULTIVITAMIN [Concomitant]
  23. ATIVAN [Concomitant]
     Dosage: ONE TO TWO DAILY
  24. METHOTREXATE [Concomitant]
  25. METHOTREXATE [Concomitant]
  26. FOLIC ACID [Concomitant]
  27. PREDNISONE [Concomitant]
     Dosage: TAPER
  28. PREDNISONE [Concomitant]
  29. PREDNISONE [Concomitant]
  30. PREDNISONE [Concomitant]
  31. PREDNISONE [Concomitant]
  32. PREDNISONE [Concomitant]
  33. ADRESET [Concomitant]
     Indication: FATIGUE
  34. MSIR [Concomitant]
     Indication: PAIN
  35. ARTHROTEC [Concomitant]
  36. ARTHROTEC [Concomitant]
     Dosage: UP TO TWICE DAILY
  37. NOROXIN [Concomitant]
     Indication: PROPHYLAXIS
  38. ULTRAM [Concomitant]
  39. MINOCYCLINE HCL [Concomitant]
     Indication: RASH
  40. CIPRO [Concomitant]
  41. CLARITHROMYCIN [Concomitant]
  42. CLARITHROMYCIN [Concomitant]
     Indication: MYCOBACTERIAL INFECTION
  43. ACIPHEX [Concomitant]
  44. ACIPHEX [Concomitant]

REACTIONS (2)
  - ATYPICAL MYCOBACTERIAL INFECTION [None]
  - HERPES ZOSTER [None]
